FAERS Safety Report 5166749-0 (Version None)
Quarter: 2006Q4

REPORT INFORMATION
  Report Type: 
  Country: None (occurrence: None)
  Receive Date: 20061207
  Receipt Date: 20061129
  Transmission Date: 20070319
  Serious: Yes (Death)
  Sender: FDA-Public Use
  Company Number: US-BRISTOL-MYERS SQUIBB COMPANY-13599394

PATIENT
  Age: 27 Year

DRUGS (3)
  1. METOPROLOL TARTRATE [Suspect]
  2. CITALOPRAM HYDROBROMIDE [Suspect]
  3. COCAINE [Suspect]

REACTIONS (1)
  - COMPLETED SUICIDE [None]
